FAERS Safety Report 12953537 (Version 2)
Quarter: 2016Q4

REPORT INFORMATION
  Report Type: Spontaneous
  Country: US (occurrence: US)
  Receive Date: 20161118
  Receipt Date: 20161129
  Transmission Date: 20170207
  Serious: Yes (Other)
  Sender: FDA-Public Use
  Company Number: US-JNJFOC-20161114243

PATIENT
  Sex: Female

DRUGS (1)
  1. LISTERINE TOTAL CARE [Suspect]
     Active Substance: SODIUM FLUORIDE
     Indication: PAIN
     Route: 048

REACTIONS (2)
  - Product use issue [Unknown]
  - Pemphigus [Unknown]

NARRATIVE: CASE EVENT DATE: 201611
